FAERS Safety Report 5295795-1 (Version None)
Quarter: 2007Q2

REPORT INFORMATION
  Report Type: 
  Country: None (occurrence: None)
  Receive Date: 20070410
  Receipt Date: 20070410
  Transmission Date: 20071010
  Serious: No
  Sender: FDA-Public Use
  Company Number: None

PATIENT
  Sex: Female
  Weight: 68.3 kg

DRUGS (1)
  1. ARIMIDEX [Suspect]
     Dosage: 1 MG

REACTIONS (4)
  - CONTRAST MEDIA REACTION [None]
  - FIBROCYSTIC BREAST DISEASE [None]
  - INFECTION [None]
  - POST PROCEDURAL COMPLICATION [None]
